FAERS Safety Report 9328553 (Version 1)
Quarter: 2013Q2

REPORT INFORMATION
  Report Type: Spontaneous
  Country: US (occurrence: US)
  Receive Date: 20130604
  Receipt Date: 20130604
  Transmission Date: 20140414
  Serious: No
  Sender: FDA-Public Use
  Company Number: US-SANOFI-AVENTIS-2012SA022354

PATIENT
  Age: 39 Year
  Sex: Female
  Weight: 109 kg

DRUGS (3)
  1. LANTUS [Suspect]
     Indication: TYPE 2 DIABETES MELLITUS
     Dosage: DOSE:4 UNIT(S)
     Route: 058
     Dates: start: 20120328, end: 20120329
  2. SOLOSTAR [Suspect]
     Indication: TYPE 2 DIABETES MELLITUS
     Dates: start: 20120328
  3. GLIPIZIDE [Concomitant]
     Indication: DIABETES MELLITUS

REACTIONS (3)
  - Chest pain [Recovered/Resolved]
  - Headache [Unknown]
  - Injection site erythema [Recovered/Resolved]
